FAERS Safety Report 15576323 (Version 1)
Quarter: 2018Q4

REPORT INFORMATION
  Report Type: Spontaneous
  Country: US (occurrence: US)
  Receive Date: 20181101
  Receipt Date: 20181101
  Transmission Date: 20190205
  Serious: No
  Sender: FDA-Public Use
  Company Number: US-PFIZER INC-2018437735

PATIENT
  Age: 84 Year
  Sex: Female
  Weight: 89.36 kg

DRUGS (2)
  1. LATANOPROST. [Suspect]
     Active Substance: LATANOPROST
     Dosage: 2 GTT, UNK (ONE DROP IN EACH EYE AT NIGHT)
     Route: 047
  2. LATANOPROST. [Suspect]
     Active Substance: LATANOPROST
     Dosage: 2 GTT, UNK (ONE DROP IN EACH EYE)
     Route: 047
     Dates: start: 201807

REACTIONS (2)
  - Eye pain [Recovered/Resolved]
  - Ocular hyperaemia [Recovered/Resolved]
